FAERS Safety Report 6724539-9 (Version None)
Quarter: 2010Q2

REPORT INFORMATION
  Report Type: 
  Country: None (occurrence: None)
  Receive Date: 20100513
  Receipt Date: 20100503
  Transmission Date: 20101027
  Serious: Yes (Other)
  Sender: FDA-Public Use
  Company Number: US-PFIZER INC-2010032020

PATIENT
  Sex: Female
  Weight: 90.703 kg

DRUGS (11)
  1. CHANTIX [Suspect]
     Indication: SMOKING CESSATION THERAPY
     Dosage: UNK MG, UNK
     Route: 048
     Dates: start: 20100224
  2. PREDNISONE TAB [Suspect]
     Dosage: UNK MG, UNK
     Route: 048
  3. XANAX [Concomitant]
     Indication: ANXIETY
     Dosage: UNK MG, UNK
     Route: 048
  4. METFORMIN [Concomitant]
     Indication: DIABETES MELLITUS
     Dosage: 2000 MG, 2X/DAY
     Route: 048
  5. CRESTOR [Concomitant]
     Indication: BLOOD CHOLESTEROL INCREASED
     Dosage: 10 MG, 1X/DAY
     Route: 048
  6. LANTUS [Concomitant]
     Indication: DIABETES MELLITUS
     Dosage: 85 IU, 1X/DAY IN THE MORNING
     Route: 051
  7. HUMALOG [Concomitant]
     Indication: DIABETES MELLITUS
     Dosage: 80 IU, 1X/DAY
  8. GABAPENTIN [Concomitant]
     Indication: ILL-DEFINED DISORDER
     Dosage: 300 MG, 1X/DAY
     Route: 048
  9. FISH OIL [Concomitant]
     Dosage: 1000 MG, 1X/DAY
     Route: 048
  10. VITAMIN B COMPLEX CAP [Concomitant]
     Dosage: UNK
  11. CHROMIUM PICOLINATE [Concomitant]
     Dosage: 1000 MG, 1X/DAY
     Route: 048

REACTIONS (3)
  - AGITATION [None]
  - BLOOD GLUCOSE FLUCTUATION [None]
  - FORMICATION [None]
